FAERS Safety Report 6051603-2 (Version None)
Quarter: 2009Q1

REPORT INFORMATION
  Report Type: 
  Country: None (occurrence: None)
  Receive Date: 20090126
  Receipt Date: 20090114
  Transmission Date: 20090719
  Serious: Yes (Hospitalization)
  Sender: FDA-Public Use
  Company Number: NL-MERCK-0901NLD00008

PATIENT
  Age: 65 Year
  Sex: Female

DRUGS (2)
  1. PROSCAR [Suspect]
     Indication: ALOPECIA
     Route: 048
     Dates: start: 20070205, end: 20070911
  2. CYPROTERONE ACETATE [Suspect]
     Indication: ALOPECIA
     Route: 048
     Dates: start: 20070911, end: 20080117

REACTIONS (1)
  - UTERINE POLYP [None]
